FAERS Safety Report 8553199-X (Version None)
Quarter: 2012Q3

REPORT INFORMATION
  Report Type: 
  Country: None (occurrence: None)
  Receive Date: 20120731
  Receipt Date: 20120724
  Transmission Date: 20120928
  Serious: Yes (Hospitalization, Other)
  Sender: FDA-Public Use
  Company Number: US-PFIZER INC-2012179334

PATIENT
  Sex: Female

DRUGS (9)
  1. CHANTIX [Suspect]
     Dosage: 1 MG, 2X/DAY
     Route: 048
     Dates: start: 20120701, end: 20120701
  2. CHANTIX [Suspect]
     Indication: SMOKING CESSATION THERAPY
     Dosage: 0.5 MG, DAILY
     Route: 048
     Dates: start: 20080101
  3. HYDROCODONE BITARTRATE + ACETAMINOPHEN [Concomitant]
     Indication: POST-TRAUMATIC STRESS DISORDER
     Dosage: 750/500MG, 2X/DAY
  4. METHOCARBAMOL [Concomitant]
     Dosage: 750 MG, DAILY
  5. LISINOPRIL [Concomitant]
     Indication: HYPERTENSION
     Dosage: 30 MG, DAILY
  6. CHANTIX [Suspect]
     Dosage: UNK
     Route: 048
     Dates: start: 20120701, end: 20120714
  7. CHLORDIAZEPOXIDE [Concomitant]
     Indication: POST-TRAUMATIC STRESS DISORDER
     Dosage: 25 MG, AS NEEDED
  8. HYDROCHLOROTHIAZIDE [Concomitant]
     Indication: HYPERTENSION
     Dosage: 25 MG, DAILY
  9. ALBUTEROL [Concomitant]
     Indication: HYPERSENSITIVITY
     Dosage: UNK

REACTIONS (16)
  - CONCUSSION [None]
  - AGGRESSION [None]
  - IMPATIENCE [None]
  - ANAEMIA [None]
  - INTENTIONAL DRUG MISUSE [None]
  - UPPER LIMB FRACTURE [None]
  - ABNORMAL DREAMS [None]
  - LOWER LIMB FRACTURE [None]
  - ANGER [None]
  - SCREAMING [None]
  - FOOT FRACTURE [None]
  - CARDIAC FAILURE CONGESTIVE [None]
  - ACTIVITIES OF DAILY LIVING IMPAIRED [None]
  - STARVATION [None]
  - PHYSICAL ASSAULT [None]
  - MOOD SWINGS [None]
